FAERS Safety Report 25074630 (Version 1)
Quarter: 2025Q1

REPORT INFORMATION
  Report Type: Spontaneous
  Country: US (occurrence: None)
  Receive Date: 20250313
  Receipt Date: 20250313
  Transmission Date: 20250409
  Serious: Yes (Death)
  Sender: FDA-CTU
  Company Number: None

PATIENT
  Age: 15 Year
  Sex: Male
  Weight: 35.9 kg

DRUGS (5)
  1. AQNEURSA [Suspect]
     Active Substance: ACETYLLEUCINE, L-
     Indication: Niemann-Pick disease
     Route: 048
     Dates: start: 20241022, end: 20250214
  2. OXCARBAZEPINE [Concomitant]
     Active Substance: OXCARBAZEPINE
  3. CLOBAZAM [Concomitant]
     Active Substance: CLOBAZAM
  4. PERAMPANEL [Concomitant]
     Active Substance: PERAMPANEL
  5. LEVETIRACETAM [Concomitant]
     Active Substance: LEVETIRACETAM

REACTIONS (3)
  - Pneumonia aspiration [None]
  - Respiratory failure [None]
  - Viral infection [None]

NARRATIVE: CASE EVENT DATE: 20250214
